FAERS Safety Report 8384713-5 (Version None)
Quarter: 2012Q2

REPORT INFORMATION
  Report Type: 
  Country: None (occurrence: None)
  Receive Date: 20120524
  Receipt Date: 20120515
  Transmission Date: 20120825
  Serious: Yes (Death, Hospitalization)
  Sender: FDA-Public Use
  Company Number: US-BAXTER-2012BAX000220

PATIENT
  Sex: Female

DRUGS (2)
  1. DIANEAL [Suspect]
     Indication: PERITONEAL DIALYSIS
     Route: 033
     Dates: end: 20120403
  2. DIANEAL [Suspect]
     Route: 033
     Dates: end: 20120403

REACTIONS (4)
  - FAILURE TO THRIVE [None]
  - COLITIS [None]
  - HYPERTENSION [None]
  - DIVERTICULITIS [None]
